FAERS Safety Report 20793594 (Version 3)
Quarter: 2022Q3

REPORT INFORMATION
  Report Type: Report from Study
  Country: US (occurrence: US)
  Receive Date: 20220506
  Receipt Date: 20220927
  Transmission Date: 20221027
  Serious: Yes (Hospitalization)
  Sender: FDA-Public Use
  Company Number: US-INSMED, INC.-2022-01135-US

PATIENT
  Sex: Female

DRUGS (3)
  1. ARIKAYCE [Suspect]
     Active Substance: AMIKACIN
     Indication: Mycobacterium avium complex infection
     Dosage: 590 MILLIGRAM
     Route: 055
     Dates: start: 20211028, end: 202204
  2. ARIKAYCE [Suspect]
     Active Substance: AMIKACIN
     Dosage: 590 MILIGRAM, QD
     Route: 055
     Dates: start: 202204
  3. AMIKACIN [Concomitant]
     Active Substance: AMIKACIN
     Indication: Mycobacterium avium complex infection
     Dosage: UNK
     Route: 042
     Dates: start: 202204

REACTIONS (4)
  - Hospitalisation [Unknown]
  - Hospitalisation [Unknown]
  - Drug resistance [Unknown]
  - Therapy interrupted [Unknown]
